FAERS Safety Report 4486328-8 (Version None)
Quarter: 2004Q4

REPORT INFORMATION
  Report Type: 
  Country: None (occurrence: None)
  Receive Date: 20041027
  Receipt Date: 20041014
  Transmission Date: 20050328
  Serious: Yes (Hospitalization, Other)
  Sender: FDA-Public Use
  Company Number: JP-JNJFOC-20041004721

PATIENT
  Sex: Female
  Weight: 39 kg

DRUGS (12)
  1. REMICADE [Suspect]
     Route: 042
  2. REMICADE [Suspect]
     Indication: RHEUMATOID ARTHRITIS
     Route: 042
  3. PREDONINE [Suspect]
     Route: 049
  4. PREDONINE [Suspect]
     Route: 049
  5. PREDONINE [Suspect]
     Route: 049
  6. PREDONINE [Suspect]
     Indication: RHEUMATOID ARTHRITIS
     Route: 049
  7. METHOTREXATE [Suspect]
  8. METHOTREXATE [Suspect]
     Indication: RHEUMATOID ARTHRITIS
  9. RIMATIL [Concomitant]
     Indication: RHEUMATOID ARTHRITIS
     Route: 049
  10. FOLIAMIN [Concomitant]
     Route: 049
  11. SELBEX [Concomitant]
     Route: 049
  12. BONALON [Concomitant]
     Route: 049

REACTIONS (4)
  - DIABETES MELLITUS [None]
  - DRUG INTERACTION [None]
  - LUNG INFECTION PSEUDOMONAL [None]
  - PLEURISY [None]
